FAERS Safety Report 11488097 (Version 1)
Quarter: 2015Q3

REPORT INFORMATION
  Report Type: Spontaneous
  Country: FR (occurrence: FR)
  Receive Date: 20150909
  Receipt Date: 20150909
  Transmission Date: 20151125
  Serious: Yes (Life-Threatening, Hospitalization)
  Sender: FDA-Public Use
  Company Number: FR-PFIZER INC-2015300062

PATIENT
  Age: 66 Year
  Sex: Female

DRUGS (4)
  1. RULID [Suspect]
     Active Substance: ROXITHROMYCIN
     Indication: SINUSITIS
     Dosage: UNK
     Route: 048
     Dates: start: 201507, end: 201507
  2. ORELOX [Suspect]
     Active Substance: CEFPODOXIME
     Indication: SINUSITIS
     Dosage: UNK
     Route: 048
     Dates: start: 201507, end: 201507
  3. AUGMENTIN [Suspect]
     Active Substance: AMOXICILLIN\CLAVULANATE POTASSIUM
     Indication: SINUSITIS
     Dosage: UNK
     Route: 048
     Dates: start: 201507, end: 201507
  4. LEVOTHYROX [Concomitant]
     Active Substance: LEVOTHYROXINE
     Dosage: UNK

REACTIONS (3)
  - Colitis ulcerative [Recovering/Resolving]
  - Megacolon [Recovering/Resolving]
  - Clostridium difficile colitis [Recovering/Resolving]

NARRATIVE: CASE EVENT DATE: 201507
